FAERS Safety Report 17158312 (Version 2)
Quarter: 2020Q4

REPORT INFORMATION
  Report Type: Spontaneous
  Country: US (occurrence: US)
  Receive Date: 20191216
  Receipt Date: 20201113
  Transmission Date: 20210113
  Serious: No
  Sender: FDA-Public Use
  Company Number: US-PFIZER INC-2019537503

PATIENT
  Age: 67 Year
  Sex: Female

DRUGS (3)
  1. PREMARIN [Suspect]
     Active Substance: ESTROGENS, CONJUGATED
     Dosage: 0.5 G, 2X/WEEK
     Route: 067
  2. PREMARIN [Suspect]
     Active Substance: ESTROGENS, CONJUGATED
     Dosage: UNK, WEEKLY
  3. PREMARIN [Suspect]
     Active Substance: ESTROGENS, CONJUGATED
     Dosage: 0.5 G, 1X/DAY(AT BEDTIME)
     Route: 067

REACTIONS (10)
  - Vulvovaginal dryness [Unknown]
  - Osteoporosis [Unknown]
  - Osteoarthritis [Unknown]
  - Off label use [Unknown]
  - Irritable bowel syndrome [Recovering/Resolving]
  - Anxiety [Recovering/Resolving]
  - Spondylolisthesis [Recovering/Resolving]
  - Colon adenoma [Unknown]
  - Chondrocalcinosis pyrophosphate [Recovered/Resolved]
  - Intervertebral disc disorder [Recovering/Resolving]
